FAERS Safety Report 7247084-3 (Version None)
Quarter: 2011Q1

REPORT INFORMATION
  Report Type: 
  Country: None (occurrence: None)
  Receive Date: 20110127
  Receipt Date: 20091228
  Transmission Date: 20110831
  Serious: No
  Sender: FDA-Public Use
  Company Number: US-BAUSCH-2009BL006763

PATIENT
  Age: 60 Year
  Sex: Female

DRUGS (1)
  1. ALAWAY [Suspect]
     Indication: EYE ALLERGY
     Route: 047
     Dates: start: 20090301, end: 20090601

REACTIONS (2)
  - CONJUNCTIVITIS [None]
  - EYE IRRITATION [None]
